FAERS Safety Report 10618429 (Version 1)
Quarter: 2014Q4

REPORT INFORMATION
  Report Type: Spontaneous
  Country: US (occurrence: US)
  Receive Date: 20141202
  Receipt Date: 20141202
  Transmission Date: 20150529
  Serious: No
  Sender: FDA-Public Use
  Company Number: US-BIOGENIDEC-2014BI124886

PATIENT
  Sex: Female

DRUGS (1)
  1. TECFIDERA [Suspect]
     Active Substance: DIMETHYL FUMARATE
     Indication: MULTIPLE SCLEROSIS

REACTIONS (17)
  - Neck pain [Not Recovered/Not Resolved]
  - Ligament sprain [Unknown]
  - Drug dose omission [Recovered/Resolved]
  - Back disorder [Not Recovered/Not Resolved]
  - Sinusitis [Not Recovered/Not Resolved]
  - Arthralgia [Unknown]
  - Back pain [Not Recovered/Not Resolved]
  - Asthenia [Unknown]
  - Discomfort [Unknown]
  - Tendon operation [Unknown]
  - Headache [Unknown]
  - Muscular weakness [Unknown]
  - Rhinorrhoea [Unknown]
  - Gastrointestinal disorder [Unknown]
  - Lethargy [Unknown]
  - Fall [Recovered/Resolved]
  - Joint injury [Unknown]
